FAERS Safety Report 9468079 (Version 1)
Quarter: 2013Q3

REPORT INFORMATION
  Report Type: Spontaneous
  Country: US (occurrence: US)
  Receive Date: 20130821
  Receipt Date: 20130821
  Transmission Date: 20140515
  Serious: Yes (Other)
  Sender: FDA-Public Use
  Company Number: US-ELI_LILLY_AND_COMPANY-US201308004063

PATIENT
  Age: 56 Year
  Sex: Male

DRUGS (1)
  1. CYMBALTA [Suspect]
     Indication: DEPRESSION
     Dosage: 30 MG, QD
     Route: 065
     Dates: start: 20130801, end: 20130807

REACTIONS (15)
  - Visual field defect [Unknown]
  - Pain [Unknown]
  - Staring [Unknown]
  - Influenza like illness [Unknown]
  - Hyperacusis [Unknown]
  - Personality change [Unknown]
  - Nausea [Unknown]
  - Dry mouth [Unknown]
  - Paraesthesia [Unknown]
  - Restlessness [Unknown]
  - Sleep disorder [Unknown]
  - Malaise [Unknown]
  - Weight decreased [Unknown]
  - Diarrhoea [Unknown]
  - Rash [Unknown]
